FAERS Safety Report 21529914 (Version 1)
Quarter: 2022Q4

REPORT INFORMATION
  Report Type: Report from Study
  Country: US (occurrence: US)
  Receive Date: 20221031
  Receipt Date: 20221031
  Transmission Date: 20230113
  Serious: No
  Sender: FDA-Public Use
  Company Number: US-ABBVIE-4181733

PATIENT
  Age: 69 Year
  Sex: Male

DRUGS (1)
  1. IMBRUVICA [Suspect]
     Active Substance: IBRUTINIB
     Indication: Product used for unknown indication
     Route: 048
     Dates: end: 2022

REACTIONS (9)
  - Polyp [Unknown]
  - Propofol infusion syndrome [Unknown]
  - Pain in extremity [Unknown]
  - Chills [Unknown]
  - Tremor [Unknown]
  - Abdominal pain [Unknown]
  - Peripheral swelling [Unknown]
  - Myalgia [Unknown]
  - Pyrexia [Unknown]

NARRATIVE: CASE EVENT DATE: 20220401
